FAERS Safety Report 24037628 (Version 1)
Quarter: 2024Q3

REPORT INFORMATION
  Report Type: Spontaneous
  Country: US (occurrence: US)
  Receive Date: 20240702
  Receipt Date: 20240702
  Transmission Date: 20241017
  Serious: Yes (Death, Hospitalization, Other)
  Sender: DR REDDYS
  Company Number: US-DRL-USA-LIT/USA/24/0009377

PATIENT
  Age: 60 Year
  Sex: Female

DRUGS (4)
  1. MINOCYCLINE [Suspect]
     Active Substance: MINOCYCLINE HYDROCHLORIDE
     Indication: Bacterial infection
  2. CEFIDEROCOL [Suspect]
     Active Substance: CEFIDEROCOL
     Indication: Bacterial infection
     Dosage: MIC OF 2 ?G/ML, ADMINISTERED AS 2 G INTRAVENOUSLY OVER 3 HOURS EVERY 8 HOUR
     Route: 042
  3. AVIBACTAM SODIUM\CEFTAZIDIME [Suspect]
     Active Substance: AVIBACTAM SODIUM\CEFTAZIDIME
     Indication: Bacterial infection
     Dosage: 2.5-G INTRAVENOUS INFUSION OVER 2 HOURS EVERY 8 HOURS
     Route: 042
  4. AZTREONAM [Suspect]
     Active Substance: AZTREONAM
     Indication: Bacterial infection
     Dosage: INFUSED AT 2 G INTRAVENOUSLY EVERY 8 HOURS
     Route: 042

REACTIONS (3)
  - Shock [Fatal]
  - Acute respiratory distress syndrome [Fatal]
  - Drug ineffective [Unknown]
